FAERS Safety Report 4332718-3 (Version None)
Quarter: 2004Q1

REPORT INFORMATION
  Report Type: 
  Country: None (occurrence: None)
  Receive Date: 20040330
  Receipt Date: 20040319
  Transmission Date: 20041129
  Serious: Yes (Other)
  Sender: FDA-Public Use
  Company Number: 2004204736BR

PATIENT
  Age: 26 Year
  Sex: Female

DRUGS (1)
  1. DEPO-PROVERA [Suspect]
     Indication: CONTRACEPTION
     Dosage: 15 MG, FIRST INJECTION/3 MONTHS, INTRAMUSCULAR
     Route: 030
     Dates: start: 20031203, end: 20031203

REACTIONS (5)
  - COMPLICATIONS OF MATERNAL EXPOSURE TO THERAPEUTIC DRUGS [None]
  - DRUG INEFFECTIVE [None]
  - PREGNANCY WITH INJECTABLE CONTRACEPTIVE [None]
  - PREMATURE SEPARATION OF PLACENTA [None]
  - UNINTENDED PREGNANCY [None]
